FAERS Safety Report 6190999-8 (Version None)
Quarter: 2009Q2

REPORT INFORMATION
  Report Type: 
  Country: None (occurrence: None)
  Receive Date: 20090513
  Receipt Date: 20090504
  Transmission Date: 20091009
  Serious: Yes (Death)
  Sender: FDA-Public Use
  Company Number: 2009AL002789

PATIENT
  Sex: Female

DRUGS (1)
  1. DIGOXIN [Suspect]
     Indication: HEART RATE IRREGULAR
     Dosage: 0.25MG, PO
     Route: 048
     Dates: start: 20060617, end: 20080115

REACTIONS (3)
  - DYSPNOEA [None]
  - NAUSEA [None]
  - THERAPEUTIC AGENT TOXICITY [None]
